FAERS Safety Report 4919095-1 (Version None)
Quarter: 2006Q1

REPORT INFORMATION
  Report Type: 
  Country: None (occurrence: None)
  Receive Date: 20060216
  Receipt Date: 20060127
  Transmission Date: 20060701
  Serious: Yes (Other)
  Sender: FDA-Public Use
  Company Number: US200601001125

PATIENT
  Age: 78 Year
  Sex: Female
  Weight: 73.5 kg

DRUGS (19)
  1. FORTEO [Suspect]
     Dosage: 20 UG, DAILY (1/D)
     Dates: start: 20050715
  2. EVISTA [Suspect]
     Dosage: 15 MG, DAILY (1/D)
  3. FORTEO [Concomitant]
  4. EXCEDRIN MIGRAINE (ACETYLSALICYLIC ACID, CAFFEINE, PARACETAMOL) [Concomitant]
  5. ZIAC [Concomitant]
  6. VALSARTAN [Concomitant]
  7. METFORMIN HCL [Concomitant]
  8. PANTOPRAZOLE SODIUM [Concomitant]
  9. ATORVASTATIN CALCIUM [Concomitant]
  10. LANOXIN [Concomitant]
  11. NORVASC [Concomitant]
  12. SYNTHROID [Concomitant]
  13. FOLIC ACID (FOLIC ACID WITH VITAMINS-MINERALS) TABLET [Concomitant]
  14. SALSALATE (SALSALATE) [Concomitant]
  15. MARYL (GLIMEPIRIDE) [Concomitant]
  16. CALCIUM (CALCIUM) [Concomitant]
  17. DARVOCET-N (PROPOXYPHENE NAPSYLATE) CAPSULE [Concomitant]
  18. VICODIN [Concomitant]
  19. ACTOS [Concomitant]

REACTIONS (6)
  - HEAD DISCOMFORT [None]
  - INTERVERTEBRAL DISC DEGENERATION [None]
  - MEAN CELL VOLUME INCREASED [None]
  - RED BLOOD CELL COUNT DECREASED [None]
  - SPINAL OSTEOARTHRITIS [None]
  - TRANSIENT ISCHAEMIC ATTACK [None]
